FAERS Safety Report 17699073 (Version 1)
Quarter: 2020Q2

REPORT INFORMATION
  Report Type: Spontaneous
  Country: US (occurrence: US)
  Receive Date: 20200422
  Receipt Date: 20200422
  Transmission Date: 20200714
  Serious: No
  Sender: FDA-Public Use
  Company Number: None

PATIENT
  Age: 73 Year
  Sex: Female

DRUGS (9)
  1. LOSARTAN. [Concomitant]
     Active Substance: LOSARTAN
  2. ALBUTEROL. [Concomitant]
     Active Substance: ALBUTEROL
  3. DEXAMETHASONE. [Concomitant]
     Active Substance: DEXAMETHASONE
  4. ATORVASTATIN [Concomitant]
     Active Substance: ATORVASTATIN
  5. POMALYST [Suspect]
     Active Substance: POMALIDOMIDE
     Indication: PLASMA CELL MYELOMA
     Route: 048
     Dates: start: 20200401
  6. ACYCLOVIR. [Concomitant]
     Active Substance: ACYCLOVIR
  7. VELCADE [Concomitant]
     Active Substance: BORTEZOMIB
  8. METOPROLOL. [Concomitant]
     Active Substance: METOPROLOL
  9. GLIPIZIDE. [Concomitant]
     Active Substance: GLIPIZIDE

REACTIONS (4)
  - Hypoaesthesia [None]
  - Peripheral swelling [None]
  - Swelling face [None]
  - Fluid retention [None]

NARRATIVE: CASE EVENT DATE: 20200421
